FAERS Safety Report 16215714 (Version 1)
Quarter: 2019Q2

REPORT INFORMATION
  Report Type: Spontaneous
  Country: US (occurrence: US)
  Receive Date: 20190418
  Receipt Date: 20190418
  Transmission Date: 20190711
  Serious: No
  Sender: FDA-Public Use
  Company Number: None

PATIENT

DRUGS (1)
  1. SANAR BAKING SODA [Suspect]
     Active Substance: SODIUM BICARBONATE

REACTIONS (1)
  - Product use complaint [None]

NARRATIVE: CASE EVENT DATE: 20190417
